FAERS Safety Report 6971999-4 (Version None)
Quarter: 2010Q3

REPORT INFORMATION
  Report Type: 
  Country: None (occurrence: None)
  Receive Date: 20100908
  Receipt Date: 20100908
  Transmission Date: 20110219
  Serious: Yes (Hospitalization, Disabling, Other)
  Sender: FDA-Public Use
  Company Number: None

PATIENT
  Age: 75 Year
  Sex: Female
  Weight: 49.8957 kg

DRUGS (1)
  1. DETROL LA [Suspect]
     Indication: INCONTINENCE
     Dosage: 1 CAPSULE ONCE PER DAY

REACTIONS (6)
  - COGNITIVE DISORDER [None]
  - DEMENTIA [None]
  - DRUG DEPENDENCE [None]
  - LOSS OF CONSCIOUSNESS [None]
  - MOBILITY DECREASED [None]
  - VISUAL IMPAIRMENT [None]
